FAERS Safety Report 7067398-X (Version None)
Quarter: 2010Q4

REPORT INFORMATION
  Report Type: 
  Country: None (occurrence: None)
  Receive Date: 20101026
  Receipt Date: 20101026
  Transmission Date: 20110411
  Serious: No
  Sender: FDA-Public Use
  Company Number: None

PATIENT
  Sex: Female
  Weight: 8.1647 kg

DRUGS (1)
  1. TEETHING TABLETS HYLAND'S [Suspect]
     Indication: TEETHING
     Dosage: 2-3 TABLETS EVERY 4 HOURS PO
     Route: 048
     Dates: start: 20100701, end: 20101001

REACTIONS (2)
  - CONSTIPATION [None]
  - FLUSHING [None]
